FAERS Safety Report 8513845-3 (Version None)
Quarter: 2012Q3

REPORT INFORMATION
  Report Type: 
  Country: None (occurrence: None)
  Receive Date: 20120705
  Receipt Date: 20120627
  Transmission Date: 20120928
  Serious: Yes (Hospitalization, Other)
  Sender: FDA-Public Use
  Company Number: 2012SP030968

PATIENT
  Sex: Male

DRUGS (2)
  1. RIBAVIRIN [Suspect]
     Indication: HEPATITIS C
     Dates: start: 20120505, end: 20120607
  2. PEG-INTRON [Suspect]
     Indication: HEPATITIS C
     Dates: start: 20120505, end: 20120607

REACTIONS (5)
  - HALLUCINATIONS, MIXED [None]
  - FALL [None]
  - CONFUSIONAL STATE [None]
  - CONVULSION [None]
  - ANXIETY [None]
